FAERS Safety Report 10933233 (Version 1)
Quarter: 2015Q1

REPORT INFORMATION
  Report Type: Report from Study
  Country: US (occurrence: US)
  Receive Date: 20150320
  Receipt Date: 20150320
  Transmission Date: 20150721
  Serious: No
  Sender: FDA-Public Use
  Company Number: US-ABBVIE-15P-163-1343844-00

PATIENT
  Age: 64 Year
  Sex: Female

DRUGS (1)
  1. VIEKIRA PAK [Suspect]
     Active Substance: DASABUVIR\OMBITASVIR\PARITAPREVIR\RITONAVIR
     Indication: HEPATITIS C
     Dosage: SEE NARRATIVE
     Route: 048
     Dates: start: 20150202

REACTIONS (6)
  - Dysarthria [Unknown]
  - Gait disturbance [Unknown]
  - Fatigue [Unknown]
  - Feeling drunk [Unknown]
  - Nasopharyngitis [Unknown]
  - Blood pressure decreased [Unknown]

NARRATIVE: CASE EVENT DATE: 20150203
